FAERS Safety Report 25389016 (Version 1)
Quarter: 2025Q2

REPORT INFORMATION
  Report Type: Spontaneous
  Country: RU (occurrence: RU)
  Receive Date: 20250603
  Receipt Date: 20250603
  Transmission Date: 20250717
  Serious: Yes (Other)
  Sender: JOHNSON AND JOHNSON
  Company Number: RU-BAYER-2025A073100

PATIENT
  Age: 69 Year
  Sex: Female
  Weight: 64 kg

DRUGS (2)
  1. XARELTO [Suspect]
     Active Substance: RIVAROXABAN
     Indication: Embolism
     Dosage: 20 MG, QD
     Route: 048
     Dates: start: 20250425, end: 20250515
  2. XARELTO [Suspect]
     Active Substance: RIVAROXABAN
     Indication: Atrial fibrillation

REACTIONS (9)
  - Gastroduodenal haemorrhage [Recovered/Resolved]
  - Melaena [Unknown]
  - Organic brain syndrome [Unknown]
  - Asthenia [Unknown]
  - Pallor [Unknown]
  - Mucosal disorder [Unknown]
  - Tongue dry [Unknown]
  - Tongue coated [Unknown]
  - Anaemia [Unknown]

NARRATIVE: CASE EVENT DATE: 20250515
